FAERS Safety Report 8392270 (Version 2)
Quarter: 2013Q1

REPORT INFORMATION
  Report Type: Spontaneous
  Country: FR (occurrence: FR)
  Receive Date: 20120206
  Receipt Date: 20130201
  Transmission Date: 20140127
  Serious: Yes (Hospitalization)
  Sender: FDA-Public Use
  Company Number: PHHY2012FR006557

PATIENT
  Age: 76 Year
  Sex: Male

DRUGS (10)
  1. GLIVEC [Suspect]
     Dosage: 400 MG, DAILY
     Dates: start: 20090620
  2. GLIVEC [Suspect]
     Dosage: 300 MG
     Dates: start: 201105
  3. GLIVEC [Suspect]
     Dosage: 200 MG
     Dates: start: 201105
  4. KARDEGIC [Concomitant]
     Dosage: UNK
  5. AVODART [Concomitant]
     Dosage: UNK
  6. ACEBUTOLOL [Concomitant]
     Dosage: UNK
  7. IKOREL [Concomitant]
     Dosage: UNK
  8. INEGY [Concomitant]
     Dosage: UNK
  9. OMACOR [Concomitant]
     Dosage: UNK
  10. OMEXEL [Concomitant]
     Dosage: UNK

REACTIONS (3)
  - Prostate cancer [Not Recovered/Not Resolved]
  - Second primary malignancy [Unknown]
  - Skin disorder [Unknown]
